FAERS Safety Report 23588262 (Version 1)
Quarter: 2024Q1

REPORT INFORMATION
  Report Type: Report from Study
  Country: US (occurrence: US)
  Receive Date: 20240302
  Receipt Date: 20240302
  Transmission Date: 20240409
  Serious: Yes (Hospitalization, Other)
  Sender: FDA-Public Use
  Company Number: US-JAZZ PHARMACEUTICALS-2024-US-003467

PATIENT
  Age: 4 Year
  Sex: Male

DRUGS (6)
  1. EPIDIOLEX [Suspect]
     Active Substance: CANNABIDIOL
     Indication: Product used for unknown indication
     Dosage: 2.5 MILLILITER, BID
     Dates: start: 20230610
  2. CLONAZEPAM [Concomitant]
     Active Substance: CLONAZEPAM
  3. SIMETHICONE (DIMETHICONE) [Concomitant]
     Active Substance: DIMETHICONE
  4. ERYTHROMYCIN [Concomitant]
     Active Substance: ERYTHROMYCIN
  5. KEPPRA [Concomitant]
     Active Substance: LEVETIRACETAM
  6. HYDROCORTISONE [Concomitant]
     Active Substance: HYDROCORTISONE

REACTIONS (7)
  - Pancreatitis [Recovered/Resolved]
  - Insomnia [Unknown]
  - Infection [Unknown]
  - Constipation [Unknown]
  - Flushing [Unknown]
  - Pain [Unknown]
  - Medical device site infection [Unknown]

NARRATIVE: CASE EVENT DATE: 20240212
